FAERS Safety Report 9435727 (Version 1)
Quarter: 2013Q3

REPORT INFORMATION
  Report Type: Spontaneous
  Country: US (occurrence: US)
  Receive Date: 20130801
  Receipt Date: 20130801
  Transmission Date: 20140515
  Serious: Yes (Other)
  Sender: FDA-Public Use
  Company Number: US-TEVA-422401USA

PATIENT
  Sex: Male

DRUGS (2)
  1. CLOZAPINE [Suspect]
  2. OMEPRAZOLE [Concomitant]

REACTIONS (3)
  - Prostate cancer [Unknown]
  - Blood alkaline phosphatase abnormal [Unknown]
  - Prostatic specific antigen increased [Unknown]
